FAERS Safety Report 15068035 (Version 2)
Quarter: 2018Q3

REPORT INFORMATION
  Report Type: Spontaneous
  Country: JP (occurrence: JP)
  Receive Date: 20180626
  Receipt Date: 20180723
  Transmission Date: 20181010
  Serious: Yes (Death, Life-Threatening, Hospitalization)
  Sender: FDA-Public Use
  Company Number: JP-ELI_LILLY_AND_COMPANY-JP201804007835

PATIENT
  Age: 67 Year
  Sex: Male

DRUGS (4)
  1. 5?FU                               /00098801/ [Concomitant]
     Active Substance: FLUOROURACIL
     Indication: OROPHARYNGEAL CANCER RECURRENT
     Dosage: 1300 MG, OTHER
     Route: 065
     Dates: start: 20170816, end: 20171015
  2. ERBITUX [Suspect]
     Active Substance: CETUXIMAB
     Indication: OROPHARYNGEAL CANCER RECURRENT
     Dosage: 400 MG, UNKNOWN
     Route: 041
     Dates: start: 20170816, end: 20171220
  3. CISPLATIN. [Concomitant]
     Active Substance: CISPLATIN
     Indication: OROPHARYNGEAL CANCER RECURRENT
     Dosage: 130 MG, DAILY
     Route: 065
     Dates: start: 20170816, end: 20171011
  4. PACLITAXEL. [Suspect]
     Active Substance: PACLITAXEL
     Indication: OROPHARYNGEAL CANCER RECURRENT
     Dosage: 120 MG, UNKNOWN
     Route: 065
     Dates: start: 20171115, end: 20171220

REACTIONS (6)
  - Pneumonia aspiration [Fatal]
  - Pneumonia [Fatal]
  - Interstitial lung disease [Fatal]
  - Malignant neoplasm progression [Fatal]
  - Off label use [Unknown]
  - Respiratory failure [Fatal]

NARRATIVE: CASE EVENT DATE: 2017
